FAERS Safety Report 7626718-5 (Version None)
Quarter: 2011Q3

REPORT INFORMATION
  Report Type: 
  Country: None (occurrence: None)
  Receive Date: 20110721
  Receipt Date: 20110120
  Transmission Date: 20111222
  Serious: Yes (Other)
  Sender: FDA-Public Use
  Company Number: US-MYLANLABS-2011S1001558

PATIENT
  Age: 24 Year
  Sex: Female

DRUGS (2)
  1. ONDANSETRON [Suspect]
     Indication: VOMITING
     Route: 048
     Dates: start: 20110117, end: 20110118
  2. ONDANSETRON [Suspect]
     Indication: NAUSEA
     Route: 048
     Dates: start: 20110117, end: 20110118

REACTIONS (4)
  - NAUSEA [None]
  - DRUG INEFFECTIVE [None]
  - VOMITING [None]
  - MATERNAL EXPOSURE DURING PREGNANCY [None]
